FAERS Safety Report 6623936-X (Version None)
Quarter: 2010Q1

REPORT INFORMATION
  Report Type: 
  Country: None (occurrence: None)
  Receive Date: 20100310
  Receipt Date: 20100226
  Transmission Date: 20100710
  Serious: Yes (Other)
  Sender: FDA-Public Use
  Company Number: DE-GENZYME-THYR-1000262

PATIENT
  Sex: Female

DRUGS (2)
  1. THYROGEN [Suspect]
     Indication: DIAGNOSTIC PROCEDURE
     Dosage: UNK
     Route: 030
     Dates: start: 20100104, end: 20100105
  2. L-THYROXIN [Concomitant]
     Indication: DRUG USE FOR UNKNOWN INDICATION
     Dosage: 100 MCG, QD

REACTIONS (1)
  - URTICARIA [None]
